FAERS Safety Report 24370464 (Version 2)
Quarter: 2024Q4

REPORT INFORMATION
  Report Type: Spontaneous
  Country: CN (occurrence: CN)
  Receive Date: 20240927
  Receipt Date: 20241003
  Transmission Date: 20250114
  Serious: Yes (Hospitalization)
  Sender: ROCHE
  Company Number: CN-ROCHE-10000088385

PATIENT
  Age: 77 Year
  Sex: Male

DRUGS (29)
  1. POLATUZUMAB VEDOTIN [Suspect]
     Active Substance: POLATUZUMAB VEDOTIN
     Indication: Diffuse large B-cell lymphoma
     Route: 065
     Dates: start: 20240406
  2. POLATUZUMAB VEDOTIN [Suspect]
     Active Substance: POLATUZUMAB VEDOTIN
     Route: 065
     Dates: start: 20240430
  3. POLATUZUMAB VEDOTIN [Suspect]
     Active Substance: POLATUZUMAB VEDOTIN
     Route: 065
     Dates: start: 20240521
  4. POLATUZUMAB VEDOTIN [Suspect]
     Active Substance: POLATUZUMAB VEDOTIN
     Route: 065
     Dates: start: 20240613
  5. RITUXIMAB [Concomitant]
     Active Substance: RITUXIMAB
     Indication: Diffuse large B-cell lymphoma
     Route: 029
     Dates: start: 20240704
  6. RITUXIMAB [Concomitant]
     Active Substance: RITUXIMAB
     Route: 029
     Dates: start: 20240430
  7. RITUXIMAB [Concomitant]
     Active Substance: RITUXIMAB
     Route: 029
     Dates: start: 20240521
  8. RITUXIMAB [Concomitant]
     Active Substance: RITUXIMAB
     Route: 029
     Dates: start: 20240613
  9. RITUXIMAB [Concomitant]
     Active Substance: RITUXIMAB
     Route: 029
     Dates: start: 20240406
  10. RITUXIMAB [Concomitant]
     Active Substance: RITUXIMAB
     Route: 029
     Dates: start: 20240815
  11. RITUXIMAB [Concomitant]
     Active Substance: RITUXIMAB
     Route: 029
     Dates: start: 20240910
  12. CYCLOPHOSPHAMIDE [Concomitant]
     Active Substance: CYCLOPHOSPHAMIDE
     Indication: Diffuse large B-cell lymphoma
     Route: 029
     Dates: start: 20240704
  13. CYCLOPHOSPHAMIDE [Concomitant]
     Active Substance: CYCLOPHOSPHAMIDE
     Route: 029
     Dates: start: 20240430
  14. CYCLOPHOSPHAMIDE [Concomitant]
     Active Substance: CYCLOPHOSPHAMIDE
     Route: 029
     Dates: start: 20240521
  15. CYCLOPHOSPHAMIDE [Concomitant]
     Active Substance: CYCLOPHOSPHAMIDE
     Route: 029
     Dates: start: 20240613
  16. CYCLOPHOSPHAMIDE [Concomitant]
     Active Substance: CYCLOPHOSPHAMIDE
     Route: 029
     Dates: start: 20240406
  17. DOXORUBICIN [Concomitant]
     Active Substance: DOXORUBICIN
     Indication: Diffuse large B-cell lymphoma
     Route: 029
     Dates: start: 20240704
  18. DEXAMETHASONE [Concomitant]
     Active Substance: DEXAMETHASONE
     Indication: Diffuse large B-cell lymphoma
     Route: 029
     Dates: start: 20240406
  19. DEXAMETHASONE [Concomitant]
     Active Substance: DEXAMETHASONE
     Route: 029
     Dates: start: 20240430
  20. DEXAMETHASONE [Concomitant]
     Active Substance: DEXAMETHASONE
     Route: 029
     Dates: start: 20240521
  21. DEXAMETHASONE [Concomitant]
     Active Substance: DEXAMETHASONE
     Route: 029
     Dates: start: 20240613
  22. PREDNISONE [Concomitant]
     Active Substance: PREDNISONE
     Indication: Diffuse large B-cell lymphoma
     Route: 065
     Dates: start: 20240704
  23. ASPIRIN [Concomitant]
     Active Substance: ASPIRIN
  24. ROSUVASTATIN CALCIUM [Concomitant]
     Active Substance: ROSUVASTATIN CALCIUM
  25. BETAHISTINE MESILATE [Concomitant]
     Active Substance: BETAHISTINE MESILATE
  26. DOXORUBICIN [Concomitant]
     Active Substance: DOXORUBICIN
     Indication: Diffuse large B-cell lymphoma
     Route: 065
     Dates: start: 20240406
  27. DOXORUBICIN [Concomitant]
     Active Substance: DOXORUBICIN
     Route: 065
     Dates: start: 20240430
  28. DOXORUBICIN [Concomitant]
     Active Substance: DOXORUBICIN
     Route: 065
     Dates: start: 20240521
  29. DOXORUBICIN [Concomitant]
     Active Substance: DOXORUBICIN
     Route: 065
     Dates: start: 20240613

REACTIONS (5)
  - Limb injury [Unknown]
  - Chest pain [Unknown]
  - Myelosuppression [Unknown]
  - Septic shock [Unknown]
  - Hypoaesthesia [Unknown]
